FAERS Safety Report 9364440 (Version 1)
Quarter: 2013Q2

REPORT INFORMATION
  Report Type: Spontaneous
  Country: TR (occurrence: TR)
  Receive Date: 20130624
  Receipt Date: 20130624
  Transmission Date: 20140414
  Serious: Yes (Life-Threatening, Hospitalization)
  Sender: FDA-Public Use
  Company Number: TR-ASTRAZENECA-2013SE47718

PATIENT
  Age: 84 Year
  Sex: Male

DRUGS (2)
  1. QUETIAPINE [Suspect]
     Indication: DELUSION
     Route: 048
  2. QUETIAPINE [Suspect]
     Indication: SLEEP DISORDER
     Route: 048

REACTIONS (1)
  - Status epilepticus [Recovered/Resolved]
